FAERS Safety Report 18137926 (Version 2)
Quarter: 2021Q3

REPORT INFORMATION
  Report Type: Spontaneous
  Country: US (occurrence: US)
  Receive Date: 20200812
  Receipt Date: 20210907
  Transmission Date: 20211014
  Serious: No
  Sender: FDA-Public Use
  Company Number: US-AMGEN-USA-20200101087

PATIENT
  Age: 46 Year
  Sex: Female

DRUGS (3)
  1. IVERMECTIN. [Concomitant]
     Active Substance: IVERMECTIN
  2. OTEZLA [Suspect]
     Active Substance: APREMILAST
     Dosage: 30 MILLIGRAM, BID
     Route: 048
  3. OTEZLA [Suspect]
     Active Substance: APREMILAST
     Indication: PSORIASIS
     Dosage: 30 MILLIGRAM, BID
     Route: 048
     Dates: start: 20190906

REACTIONS (1)
  - Psoriasis [Not Recovered/Not Resolved]
